FAERS Safety Report 12720264 (Version 1)
Quarter: 2016Q3

REPORT INFORMATION
  Report Type: Spontaneous
  Country: US (occurrence: US)
  Receive Date: 20160907
  Receipt Date: 20160907
  Transmission Date: 20161109
  Serious: Yes (Other)
  Sender: FDA-Public Use
  Company Number: None

PATIENT
  Age: 66 Year
  Sex: Male
  Weight: 78.75 kg

DRUGS (20)
  1. FISH  OIL [Concomitant]
     Active Substance: FISH OIL
  2. DEXILANT [Concomitant]
     Active Substance: DEXLANSOPRAZOLE
  3. LIPITOR [Concomitant]
     Active Substance: ATORVASTATIN CALCIUM
  4. CALCIUM [Concomitant]
     Active Substance: CALCIUM
  5. MULTI-VITAMIN [Concomitant]
     Active Substance: .ALPHA.-TOCOPHEROL ACETATE, DL-\ASCORBIC ACID\CYANOCOBALAMIN\FLUORIDE ION\FOLIC ACID\NIACIN\PYRIDOXINE\RIBOFLAVIN\THIAMINE\VITAMIN A\VITAMIN D
  6. LUTEIN [Concomitant]
     Active Substance: LUTEIN
  7. QNASL [Suspect]
     Active Substance: BECLOMETHASONE DIPROPIONATE
     Indication: MULTIPLE ALLERGIES
     Dosage: OTHER STRENGTH:MCG;OTHER DOSE:;OTHER FREQUENCY:;OTHER ROUTE:
     Route: 055
     Dates: start: 20160810, end: 20160902
  8. ZANTAC [Concomitant]
     Active Substance: RANITIDINE HYDROCHLORIDE
  9. COENZYME Q10 [Concomitant]
     Active Substance: UBIDECARENONE
  10. WARFARIN [Concomitant]
     Active Substance: WARFARIN
  11. SINGULAIR [Concomitant]
     Active Substance: MONTELUKAST SODIUM
  12. DIGOXIN. [Concomitant]
     Active Substance: DIGOXIN
  13. ALLEGRA [Concomitant]
     Active Substance: FEXOFENADINE HYDROCHLORIDE
  14. MIRALAX [Concomitant]
     Active Substance: POLYETHYLENE GLYCOL 3350
  15. ATROVENT [Concomitant]
     Active Substance: IPRATROPIUM BROMIDE
  16. VITAMIN C [Concomitant]
     Active Substance: ASCORBIC ACID
  17. ASPIRIN. [Concomitant]
     Active Substance: ASPIRIN
  18. AMBIEN [Concomitant]
     Active Substance: ZOLPIDEM TARTRATE
  19. VITAMIN D [Concomitant]
     Active Substance: CHOLECALCIFEROL
  20. MAGNESIUM [Concomitant]
     Active Substance: MAGNESIUM

REACTIONS (2)
  - Accidental overdose [None]
  - Device malfunction [None]

NARRATIVE: CASE EVENT DATE: 20160901
